FAERS Safety Report 9889971 (Version 1)
Quarter: 2014Q1

REPORT INFORMATION
  Report Type: Spontaneous
  Country: GB (occurrence: GB)
  Receive Date: 20140212
  Receipt Date: 20140212
  Transmission Date: 20141002
  Serious: Yes (Hospitalization)
  Sender: FDA-Public Use
  Company Number: GB-AMGEN-GBRSP2014009346

PATIENT
  Age: 71 Year
  Sex: Female

DRUGS (3)
  1. PROLIA [Suspect]
     Indication: OSTEOPOROSIS POSTMENOPAUSAL
     Dosage: 60 MG, UNK
     Route: 058
     Dates: start: 20130601, end: 20130601
  2. ADCAL D3 [Concomitant]
     Dosage: UNK
     Route: 065
  3. CO-DYDRAMOL [Concomitant]
     Dosage: UNK

REACTIONS (2)
  - Urinary tract infection [Recovering/Resolving]
  - Cellulitis [Recovering/Resolving]
